FAERS Safety Report 23687095 (Version 1)
Quarter: 2024Q1

REPORT INFORMATION
  Report Type: Other
  Country: JP (occurrence: None)
  Receive Date: 20240329
  Receipt Date: 20240329
  Transmission Date: 20240410
  Serious: Yes (Other)
  Sender: FDA-Public Use
  Company Number: JP-ROCHE-3530017

PATIENT

DRUGS (2)
  1. BEVACIZUMAB [Suspect]
     Active Substance: BEVACIZUMAB
     Indication: Colon cancer
     Route: 065
  2. FLUOROURACIL\LEUCOVORIN\OXALIPLATIN [Suspect]
     Active Substance: FLUOROURACIL\LEUCOVORIN\OXALIPLATIN
     Indication: Colon cancer
     Route: 065

REACTIONS (17)
  - Neutropenia [Unknown]
  - Leukopenia [Unknown]
  - Decreased appetite [Unknown]
  - Nausea [Unknown]
  - Vomiting [Unknown]
  - Abdominal infection [Unknown]
  - Peripheral sensory neuropathy [Unknown]
  - Fatigue [Unknown]
  - Diarrhoea [Unknown]
  - Mucosal inflammation [Unknown]
  - Gastric ulcer [Unknown]
  - Anaemia [Unknown]
  - Thrombocytopenia [Unknown]
  - Blood creatinine increased [Unknown]
  - Hypomagnesaemia [Unknown]
  - Dermatitis acneiform [Unknown]
  - Dizziness [Unknown]
